FAERS Safety Report 4860634-7 (Version None)
Quarter: 2005Q4

REPORT INFORMATION
  Report Type: 
  Country: None (occurrence: None)
  Receive Date: 20051216
  Receipt Date: 20051129
  Transmission Date: 20060501
  Serious: Yes (Other)
  Sender: FDA-Public Use
  Company Number: 200514752BCC

PATIENT
  Sex: Male
  Weight: 90.7194 kg

DRUGS (2)
  1. GENUINE BAYER (ACETYLSALICYLIC ACID) [Suspect]
     Indication: PAIN
     Dosage: ORAL
     Route: 048
  2. BAYER 81 MG ASPIRIN (ACETYLSALICYLIC ACID) [Suspect]

REACTIONS (1)
  - MYOCARDIAL INFARCTION [None]
